FAERS Safety Report 24064028 (Version 1)
Quarter: 2024Q3

REPORT INFORMATION
  Report Type: Spontaneous
  Country: GB (occurrence: GB)
  Receive Date: 20240709
  Receipt Date: 20240709
  Transmission Date: 20241017
  Serious: Yes (Other)
  Sender: RANBAXY
  Company Number: GB-SUN PHARMACEUTICAL INDUSTRIES LTD-2024RR-455848

PATIENT
  Age: 15 Year
  Sex: Male

DRUGS (4)
  1. RISPERIDONE [Suspect]
     Active Substance: RISPERIDONE
     Indication: Catatonia
     Dosage: 2 MILLIGRAM, DAILY
     Route: 065
  2. LORAZEPAM [Suspect]
     Active Substance: LORAZEPAM
     Indication: Catatonia
     Dosage: 0.5 MILLIGRAM, TID
     Route: 065
     Dates: start: 20230710
  3. LORAZEPAM [Suspect]
     Active Substance: LORAZEPAM
     Dosage: 1 MILLIGRAM, TID
     Route: 065
  4. DIAZEPAM [Suspect]
     Active Substance: DIAZEPAM
     Indication: Catatonia
     Dosage: UNK
     Route: 065

REACTIONS (8)
  - Therapy partial responder [Unknown]
  - Appetite disorder [Unknown]
  - Suicidal ideation [Unknown]
  - Aggression [Unknown]
  - Aggression [Unknown]
  - Sexually inappropriate behaviour [Unknown]
  - Paradoxical drug reaction [Unknown]
  - Drug ineffective [Unknown]
